FAERS Safety Report 9557443 (Version 1)
Quarter: 2013Q3

REPORT INFORMATION
  Report Type: Spontaneous
  Country: US (occurrence: None)
  Receive Date: 20130726
  Receipt Date: 20130726
  Transmission Date: 20140515
  Serious: Yes (Hospitalization)
  Sender: FDA-Public Use
  Company Number: UTC-019753

PATIENT
  Age: 3 Year
  Sex: Male
  Weight: 13.86 kg

DRUGS (3)
  1. REMODULIN [Suspect]
     Indication: PULMONARY HYPERTENSION
     Dosage: (0.013 UG/KG, 1 IN 1 MIN)
     Route: 042
     Dates: start: 20100601
  2. DIURETICS (DIURETICS) [Concomitant]
  3. SILDENAFIL CITRATE POWDER (SILDENAFIL CITRATE) [Concomitant]

REACTIONS (1)
  - Sepsis [None]
